FAERS Safety Report 15857369 (Version 1)
Quarter: 2019Q1

REPORT INFORMATION
  Report Type: Spontaneous
  Country: US (occurrence: US)
  Receive Date: 20190123
  Receipt Date: 20190123
  Transmission Date: 20190417
  Serious: Yes (Other)
  Sender: FDA-Public Use
  Company Number: US-MALLINCKRODT-T201901021

PATIENT
  Sex: Female
  Weight: 57 kg

DRUGS (3)
  1. DARVOCET [Concomitant]
     Active Substance: ACETAMINOPHEN\PROPOXYPHENE HYDROCHLORIDE
     Indication: BREAKTHROUGH PAIN
     Dosage: 100 MCG, Q6H
     Route: 065
  2. FENTANYL TRANSDERMAL SYSTEM [Suspect]
     Active Substance: FENTANYL
     Indication: PAIN
     Dosage: 100 MCG/HR
     Route: 062
  3. FENTANYL TRANSDERMAL SYSTEM [Suspect]
     Active Substance: FENTANYL
     Dosage: 50 MCG/HR, EVERY THREE DAYS
     Route: 062

REACTIONS (7)
  - Headache [Unknown]
  - Suicidal ideation [Unknown]
  - Drug ineffective [Unknown]
  - Migraine [Unknown]
  - Malaise [Unknown]
  - Insomnia [Unknown]
  - Vomiting [Unknown]
